FAERS Safety Report 10015973 (Version 1)
Quarter: 2014Q1

REPORT INFORMATION
  Report Type: Report from Study
  Country: US (occurrence: US)
  Receive Date: 20140317
  Receipt Date: 20140317
  Transmission Date: 20141002
  Serious: Yes (Other)
  Sender: FDA-Public Use
  Company Number: US-BAXTER-2014BAX013117

PATIENT
  Age: 44 Year
  Sex: Female

DRUGS (12)
  1. ENDOXAN [Suspect]
     Indication: PULMONARY ALVEOLAR HAEMORRHAGE
     Route: 048
  2. ENDOXAN [Suspect]
     Indication: ANTIPHOSPHOLIPID SYNDROME
  3. GAMMAGARD LIQUID [Suspect]
     Indication: PULMONARY ALVEOLAR HAEMORRHAGE
     Dosage: 2 GM/KG
     Route: 042
  4. GAMMAGARD LIQUID [Suspect]
     Indication: ANTIPHOSPHOLIPID SYNDROME
  5. MYCOPHENOLATE MOFETIL [Suspect]
     Indication: PULMONARY ALVEOLAR HAEMORRHAGE
     Route: 048
  6. MYCOPHENOLATE MOFETIL [Suspect]
     Indication: ANTIPHOSPHOLIPID SYNDROME
  7. HYDROXYCHLOROQUINE [Suspect]
     Indication: ANTIPHOSPHOLIPID SYNDROME
     Route: 048
  8. HYDROXYCHLOROQUINE [Suspect]
     Indication: PULMONARY ALVEOLAR HAEMORRHAGE
  9. RITUXIMAB [Suspect]
     Indication: ANTIPHOSPHOLIPID SYNDROME
     Dosage: 4 DOSES
  10. RITUXIMAB [Suspect]
     Indication: PULMONARY ALVEOLAR HAEMORRHAGE
  11. AZATHIOPRINE [Suspect]
     Indication: ANTIPHOSPHOLIPID SYNDROME
     Route: 048
  12. AZATHIOPRINE [Suspect]
     Indication: PULMONARY ALVEOLAR HAEMORRHAGE

REACTIONS (2)
  - Disease progression [Unknown]
  - Disease complication [Unknown]
